FAERS Safety Report 16646735 (Version 2)
Quarter: 2020Q4

REPORT INFORMATION
  Report Type: Spontaneous
  Country: PL (occurrence: PL)
  Receive Date: 20190730
  Receipt Date: 20201216
  Transmission Date: 20210113
  Serious: Yes (Other)
  Sender: FDA-Public Use
  Company Number: PL-AMGEN-POLSP2019119255

PATIENT
  Age: 4 Year
  Sex: Female

DRUGS (10)
  1. FILGRASTIM [Suspect]
     Active Substance: FILGRASTIM
     Indication: HAEMATOPOIETIC STEM CELL MOBILISATION
     Dosage: 12 MICROGRAM/KILOGRAM, AFTER CHEMO (19 DAYS AFTER COJEC THERAPY)
     Route: 058
  2. PLERIXAFOR [Concomitant]
     Active Substance: PLERIXAFOR
     Indication: HAEMATOPOIETIC STEM CELL MOBILISATION
     Dosage: 0.24 MILLIGRAM/KILOGRAM (10 TO 14 HOURS BEFORE LEUKAPHERESIS)
  3. BUSULFAN. [Concomitant]
     Active Substance: BUSULFAN
     Indication: NEUROBLASTOMA
     Dosage: UNK
  4. VINCRISTINE [Concomitant]
     Active Substance: VINCRISTINE
     Indication: NEUROBLASTOMA
     Dosage: UNK
  5. MELPHALAN. [Concomitant]
     Active Substance: MELPHALAN
     Indication: NEUROBLASTOMA
     Dosage: UNK
  6. TOPOTECAN [Concomitant]
     Active Substance: TOPOTECAN HYDROCHLORIDE
     Indication: NEUROBLASTOMA
     Dosage: UNK
  7. DOXORUBICIN [Concomitant]
     Active Substance: DOXORUBICIN
     Indication: NEUROBLASTOMA
     Dosage: UNK
  8. CYCLOPHOSPHAMIDE. [Concomitant]
     Active Substance: CYCLOPHOSPHAMIDE
     Indication: NEUROBLASTOMA
     Dosage: 4 GRAM PER SQUARE METRE, AFTER CHEMO
  9. FILGRASTIM [Suspect]
     Active Substance: FILGRASTIM
     Dosage: 12 MICROGRAM/KILOGRAM, AFTER CHEMO (18 DAYS AFTER TVD THERAPY)
     Route: 058
  10. FILGRASTIM [Suspect]
     Active Substance: FILGRASTIM
     Dosage: 10 MICROGRAM/KILOGRAM (FOR 4 DAYS)
     Route: 058

REACTIONS (2)
  - Drug ineffective [Unknown]
  - Pancytopenia [Recovering/Resolving]
